FAERS Safety Report 8791795 (Version 1)
Quarter: 2012Q4

REPORT INFORMATION
  Report Type: 
  Country: US (occurrence: US)
  Receive Date: 20120918
  Receipt Date: 20120918
  Transmission Date: 20130627
  Serious: No
  Sender: FDA-Public Use
  Company Number: US-PFIZER INC-2012229293

PATIENT

DRUGS (1)
  1. CELEBREX [Suspect]
     Dosage: 200mg, UNK

REACTIONS (1)
  - Oedema peripheral [Unknown]
